FAERS Safety Report 4957232-3 (Version None)
Quarter: 2006Q1

REPORT INFORMATION
  Report Type: 
  Country: None (occurrence: None)
  Receive Date: 20060329
  Receipt Date: 20051215
  Transmission Date: 20060701
  Serious: Yes (Hospitalization)
  Sender: FDA-Public Use
  Company Number: US-MERCK-0512USA02565

PATIENT
  Age: 66 Year
  Sex: Female
  Weight: 109 kg

DRUGS (8)
  1. VIOXX [Suspect]
     Indication: CHEST PAIN
     Route: 048
     Dates: start: 20011115, end: 20040831
  2. VIOXX [Suspect]
     Indication: TENDON INJURY
     Route: 048
     Dates: start: 20011115, end: 20040831
  3. ASPIRIN [Concomitant]
     Route: 065
     Dates: start: 19950101, end: 20040830
  4. DIOVAN [Concomitant]
     Route: 065
     Dates: start: 20010103, end: 20031231
  5. DILTIAZEM MALATE [Concomitant]
     Route: 065
     Dates: start: 20010510, end: 20030103
  6. ESTINYL [Concomitant]
     Route: 065
     Dates: start: 20001101, end: 20030101
  7. TYLENOL (CAPLET) [Concomitant]
     Route: 065
     Dates: start: 19890101
  8. IMITREX [Concomitant]
     Route: 065
     Dates: start: 20001101, end: 20030101

REACTIONS (6)
  - ANXIETY [None]
  - BLOOD CHOLESTEROL INCREASED [None]
  - DYSPNOEA [None]
  - GOUT [None]
  - HYPOKALAEMIA [None]
  - PULMONARY EMBOLISM [None]
